FAERS Safety Report 20440148 (Version 1)
Quarter: 2022Q1

REPORT INFORMATION
  Report Type: Spontaneous
  Country: US (occurrence: None)
  Receive Date: 20220206
  Receipt Date: 20220206
  Transmission Date: 20220423
  Serious: No
  Sender: FDA-Public Use
  Company Number: None

PATIENT
  Age: 50 Year
  Sex: Male
  Weight: 80 kg

DRUGS (2)
  1. SINGULAIR [Suspect]
     Active Substance: MONTELUKAST SODIUM
     Indication: Asthma
     Dosage: OTHER QUANTITY : 1 TABLET(S);?FREQUENCY : DAILY;?
     Route: 048
     Dates: start: 20220126, end: 20220203
  2. Flovent 220mcg, 2 puffs/day [Concomitant]

REACTIONS (3)
  - Manufacturing issue [None]
  - Product quality issue [None]
  - Asthma [None]

NARRATIVE: CASE EVENT DATE: 20220201
